FAERS Safety Report 13502971 (Version 1)
Quarter: 2017Q2

REPORT INFORMATION
  Report Type: Spontaneous
  Country: US (occurrence: US)
  Receive Date: 20170501
  Receipt Date: 20170501
  Transmission Date: 20170830
  Serious: No
  Sender: FDA-Public Use
  Company Number: None

PATIENT
  Age: 66 Year
  Sex: Male

DRUGS (2)
  1. EPCLUSA [Suspect]
     Active Substance: SOFOSBUVIR\VELPATASVIR
  2. PHENERGAN-DM SYRUP [Concomitant]

REACTIONS (4)
  - Malaise [None]
  - Fatigue [None]
  - Infection [None]
  - Viral upper respiratory tract infection [None]

NARRATIVE: CASE EVENT DATE: 20170501
